FAERS Safety Report 17576855 (Version 1)
Quarter: 2020Q1

REPORT INFORMATION
  Report Type: Spontaneous
  Country: US (occurrence: US)
  Receive Date: 20200319
  Receipt Date: 20200319
  Transmission Date: 20200409
  Serious: Yes (Hospitalization)
  Sender: FDA-Public Use
  Company Number: None

PATIENT
  Sex: Female
  Weight: 72.6 kg

DRUGS (4)
  1. CARBOPLATIN. [Suspect]
     Active Substance: CARBOPLATIN
     Dates: end: 20200204
  2. TAXOL [Suspect]
     Active Substance: PACLITAXEL
     Dates: end: 20200218
  3. DOXORUBICIN HYDROCHLORIDE. [Suspect]
     Active Substance: DOXORUBICIN HYDROCHLORIDE
     Dates: end: 20191112
  4. CYCLOPHOSPHAMIDE. [Suspect]
     Active Substance: CYCLOPHOSPHAMIDE
     Dates: end: 20191112

REACTIONS (11)
  - Myalgia [None]
  - Thrombocytopenia [None]
  - Rash [None]
  - Occult blood positive [None]
  - Back pain [None]
  - Flushing [None]
  - Transfusion reaction [None]
  - Abdominal pain [None]
  - Pain in extremity [None]
  - Urine analysis abnormal [None]
  - Renal colic [None]

NARRATIVE: CASE EVENT DATE: 20200208
